FAERS Safety Report 6696042-6 (Version None)
Quarter: 2010Q2

REPORT INFORMATION
  Report Type: 
  Country: None (occurrence: None)
  Receive Date: 20100426
  Receipt Date: 20100414
  Transmission Date: 20101027
  Serious: Yes (Other)
  Sender: FDA-Public Use
  Company Number: PHHY2010US21980

PATIENT
  Sex: Female
  Weight: 60.771 kg

DRUGS (12)
  1. EXJADE [Suspect]
     Indication: MYELODYSPLASTIC SYNDROME
     Dosage: 1125 MG, QD
     Route: 048
     Dates: start: 20100401, end: 20100407
  2. AZACITIDINE [Concomitant]
     Dosage: 100 MG
     Route: 042
     Dates: start: 20100329
  3. COMPAZINE [Concomitant]
     Indication: NAUSEA
     Dosage: 10 MG TABLET, Q4-6H PRN
     Route: 048
  4. ALBUTEROL SULFATE AUTOHALER [Concomitant]
  5. COUMADIN [Concomitant]
     Dosage: UNK
  6. LORAZEPAM [Concomitant]
     Dosage: 0.5 MG, PRN
     Route: 048
  7. MAGNESIUM [Concomitant]
     Dosage: 500 MG, PRN
  8. MECLIZINE HYDROCHLORIDE [Concomitant]
     Dosage: 12.5 MG, BID PRN
     Route: 048
  9. OXYGEN [Concomitant]
     Dosage: UNK
  10. TUMS [Concomitant]
     Dosage: 500 MG
     Route: 048
  11. TYLENOL-500 [Concomitant]
     Dosage: 1000 MG, PRN
  12. VITAMIN D [Concomitant]
     Dosage: 400 UNIT TABLET
     Route: 048

REACTIONS (8)
  - ABDOMINAL PAIN [None]
  - BLADDER PAIN [None]
  - CHRONIC OBSTRUCTIVE PULMONARY DISEASE [None]
  - DYSPNOEA EXERTIONAL [None]
  - HAEMOGLOBIN DECREASED [None]
  - JOINT SWELLING [None]
  - PRURITUS [None]
  - URINARY INCONTINENCE [None]
